FAERS Safety Report 10561958 (Version 1)
Quarter: 2014Q4

REPORT INFORMATION
  Report Type: Spontaneous
  Country: DE (occurrence: DE)
  Receive Date: 20141104
  Receipt Date: 20141104
  Transmission Date: 20150529
  Serious: Yes (Congenital Anomaly, Other)
  Sender: FDA-Public Use
  Company Number: DE-ACCORD-026776

PATIENT
  Age: 1 Day
  Sex: Male
  Weight: 3.63 kg

DRUGS (1)
  1. QUETIAPINE [Suspect]
     Active Substance: QUETIAPINE
     Indication: SCHIZOPHRENIA, PARANOID TYPE
     Route: 064
     Dates: start: 20120520, end: 20130222

REACTIONS (8)
  - Disturbance in attention [Not Recovered/Not Resolved]
  - Neonatal behavioural syndrome [Not Recovered/Not Resolved]
  - Photophobia [Unknown]
  - Facial asymmetry [Not Recovered/Not Resolved]
  - Agitation [Unknown]
  - Hyperreflexia [Unknown]
  - Foetal exposure during pregnancy [Unknown]
  - Haemangioma congenital [Unknown]

NARRATIVE: CASE EVENT DATE: 20130222
